FAERS Safety Report 25857043 (Version 2)
Quarter: 2025Q4

REPORT INFORMATION
  Report Type: Spontaneous
  Country: EU (occurrence: EU)
  Receive Date: 20250929
  Receipt Date: 20251105
  Transmission Date: 20260117
  Serious: Yes (Hospitalization, Other)
  Sender: MERCK SHARP & DOHME LLC
  Company Number: EU-002147023-NVSC2022DE000561

PATIENT
  Age: 29 Year
  Sex: Female
  Weight: 70 kg

DRUGS (24)
  1. KEYTRUDA [Suspect]
     Active Substance: PEMBROLIZUMAB
     Indication: Ovarian cancer
     Dosage: DOSE DESCRIPTION : UNK
     Dates: start: 20210514, end: 20210916
  2. KEYTRUDA [Suspect]
     Active Substance: PEMBROLIZUMAB
     Indication: Ovarian cancer
     Dosage: DOSE DESCRIPTION : UNK
     Dates: start: 2021
  3. SODIUM CITRATE\SODIUM LAURYL SULFOACETATE\SORBITOL [Concomitant]
     Active Substance: SODIUM CITRATE\SODIUM LAURYL SULFOACETATE\SORBITOL
     Dosage: DOSE DESCRIPTION : UNK
     Dates: start: 20210101, end: 2021
  4. METAMIZOL [Concomitant]
     Active Substance: METAMIZOLE SODIUM
     Dosage: DOSE DESCRIPTION : UNK
     Dates: end: 20220315
  5. NALOXEGOL [Concomitant]
     Active Substance: NALOXEGOL
     Dosage: DOSE DESCRIPTION : UNK
     Dates: end: 20211230
  6. POLYETHYLENE GLYCOLS [Concomitant]
     Active Substance: POLYETHYLENE GLYCOLS
     Dosage: DOSE DESCRIPTION : UNK
     Dates: end: 20211230
  7. PRUCALOPRIDE SUCCINATE [Concomitant]
     Active Substance: PRUCALOPRIDE SUCCINATE
     Dosage: DOSE DESCRIPTION : UNK
     Dates: end: 20211230
  8. UREA [Concomitant]
     Active Substance: UREA
     Dosage: DOSE DESCRIPTION : UNK
     Dates: start: 20211229
  9. GLYCERIN [Concomitant]
     Active Substance: GLYCERIN
     Dosage: DOSE DESCRIPTION : UNK
     Dates: start: 20211001, end: 202110
  10. ENOXAPARIN SODIUM [Concomitant]
     Active Substance: ENOXAPARIN SODIUM
     Dosage: DOSE DESCRIPTION : UNK
     Dates: start: 20211116, end: 20220102
  11. PIPERACILLIN SODIUM\TAZOBACTAM SODIUM [Concomitant]
     Active Substance: PIPERACILLIN SODIUM\TAZOBACTAM SODIUM
     Dosage: DOSE DESCRIPTION : UNK
     Dates: start: 20220104, end: 20220105
  12. CIPROFLOXACIN [Concomitant]
     Active Substance: CIPROFLOXACIN
     Dosage: DOSE DESCRIPTION : UNK
     Dates: start: 20220101, end: 20220103
  13. DEXTROSE [Concomitant]
     Active Substance: DEXTROSE MONOHYDRATE
     Dosage: DOSE DESCRIPTION : UNK
     Dates: start: 20220101
  14. CALCIUM CARBONATE WITH VITAMIN D (CHOLECALCIFEROL) [Concomitant]
     Active Substance: CALCIUM CARBONATE\CHOLECALCIFEROL
     Indication: Prophylaxis
  15. DIMETHICONE [Concomitant]
     Active Substance: DIMETHICONE
     Indication: Flatulence
     Dosage: DOSE DESCRIPTION : UNK
     Dates: end: 20220101
  16. HYDROMORPHONE HCL [Concomitant]
     Active Substance: HYDROMORPHONE HYDROCHLORIDE
  17. LACTULOSE [Concomitant]
     Active Substance: LACTULOSE
  18. PANTOPRAZOLE SODIUM [Concomitant]
     Active Substance: PANTOPRAZOLE SODIUM
     Dosage: DOSE DESCRIPTION : UNK
     Dates: end: 20220226
  19. TAZOBACTAM [Concomitant]
     Active Substance: TAZOBACTAM
  20. ALIZAPRIDE HYDROCHLORIDE [Concomitant]
     Active Substance: ALIZAPRIDE HYDROCHLORIDE
  21. DIMENHYDRINATE [Concomitant]
     Active Substance: DIMENHYDRINATE
  22. ALTEPLASE [Concomitant]
     Active Substance: ALTEPLASE
  23. AMINO ACIDS\DEXTROSE\ELECTROLYTES NOS\SOYBEAN OIL [Concomitant]
     Active Substance: AMINO ACIDS\DEXTROSE\ELECTROLYTES NOS\SOYBEAN OIL
  24. OLIMEL [Concomitant]
     Active Substance: AMINO ACIDS\DEXTROSE\SOYBEAN OIL

REACTIONS (6)
  - Immune-mediated hypophysitis [Recovered/Resolved]
  - Hypoglycaemia [Recovered/Resolved]
  - Decreased appetite [Unknown]
  - Dizziness [Not Recovered/Not Resolved]
  - Pyrexia [Not Recovered/Not Resolved]
  - Secondary adrenocortical insufficiency [Unknown]

NARRATIVE: CASE EVENT DATE: 20211001
